FAERS Safety Report 7042339-X (Version None)
Quarter: 2010Q4

REPORT INFORMATION
  Report Type: 
  Country: None (occurrence: None)
  Receive Date: 20101013
  Receipt Date: 20090928
  Transmission Date: 20110411
  Serious: No
  Sender: FDA-Public Use
  Company Number: US-ASTRAZENECA-2009SE15838

PATIENT
  Sex: Male

DRUGS (2)
  1. SYMBICORT [Suspect]
     Indication: ASTHMA
     Dosage: 160 MCG, ONE PUFF IN MORNING AND ONE PUFF IN EVENING
     Route: 055
  2. SINGULAIR [Concomitant]

REACTIONS (1)
  - DYSPNOEA [None]
